FAERS Safety Report 7315155-9 (Version None)
Quarter: 2011Q1

REPORT INFORMATION
  Report Type: 
  Country: None (occurrence: None)
  Receive Date: 20110225
  Receipt Date: 20110217
  Transmission Date: 20110831
  Serious: Yes (Other)
  Sender: FDA-Public Use
  Company Number: AU-PFIZER INC-2009289252

PATIENT
  Age: 74 Year
  Sex: Male

DRUGS (4)
  1. ATORVASTATIN [Concomitant]
     Dosage: 40 MG DAILY
  2. AMLODIPINE BESYLATE [Suspect]
     Dosage: 10 MG, DAILY
  3. PERINDOPRIL ERBUMINE [Suspect]
     Dosage: 4 MG, UNK
  4. IMATINIB MESYLATE [Suspect]
     Indication: CHRONIC MYELOID LEUKAEMIA
     Dosage: 400 MG, 2X/DAY

REACTIONS (7)
  - MEDICATION ERROR [None]
  - PALPITATIONS [None]
  - NAUSEA [None]
  - DRUG INTERACTION [None]
  - NEUROPATHY PERIPHERAL [None]
  - OEDEMA PERIPHERAL [None]
  - PERIORBITAL OEDEMA [None]
